FAERS Safety Report 11840394 (Version 1)
Quarter: 2015Q4

REPORT INFORMATION
  Report Type: Spontaneous
  Country: US (occurrence: US)
  Receive Date: 20151216
  Receipt Date: 20151216
  Transmission Date: 20160305
  Serious: No
  Sender: FDA-Public Use
  Company Number: US-GALDERMA-US15007837

PATIENT
  Age: 17 Year
  Sex: Female

DRUGS (5)
  1. ENBREL [Concomitant]
     Active Substance: ETANERCEPT
     Dates: start: 2011
  2. UNSPECIFIED SUNSCREEN WITH SPF 35 OR 50 [Concomitant]
     Indication: PROPHYLAXIS AGAINST SOLAR RADIATION
     Route: 061
  3. MIRVASO [Suspect]
     Active Substance: BRIMONIDINE TARTRATE
     Indication: ROSACEA
     Dosage: 0.33%
     Route: 061
     Dates: start: 20151010, end: 20151014
  4. CLINIQUE MOISTURIZING LOTION [Concomitant]
     Route: 061
     Dates: start: 2009
  5. AVEENO VERY SENSITIVE SKIN FOAM [Concomitant]
     Indication: THERAPEUTIC SKIN CARE TOPICAL
     Route: 061

REACTIONS (9)
  - Activities of daily living impaired [Recovering/Resolving]
  - Skin burning sensation [Recovering/Resolving]
  - Condition aggravated [Recovering/Resolving]
  - Skin discomfort [Recovering/Resolving]
  - Pain of skin [Recovering/Resolving]
  - Rebound effect [Recovering/Resolving]
  - Skin discolouration [Recovering/Resolving]
  - Rash erythematous [Recovering/Resolving]
  - Erythema [Recovering/Resolving]

NARRATIVE: CASE EVENT DATE: 20151013
